FAERS Safety Report 18943696 (Version 1)
Quarter: 2021Q1

REPORT INFORMATION
  Report Type: Spontaneous
  Country: PL (occurrence: PL)
  Receive Date: 20210226
  Receipt Date: 20210226
  Transmission Date: 20210420
  Serious: Yes (Hospitalization)
  Sender: FDA-Public Use
  Company Number: PL-ACCORD-217886

PATIENT
  Age: 58 Year
  Sex: Male

DRUGS (7)
  1. LEVETIRACETAM. [Suspect]
     Active Substance: LEVETIRACETAM
     Indication: PRODUCT USED FOR UNKNOWN INDICATION
     Dosage: 2 X 1000 MG
  2. LEVETIRACETAM. [Suspect]
     Active Substance: LEVETIRACETAM
     Indication: PRODUCT USED FOR UNKNOWN INDICATION
  3. METHOTREXATE. [Concomitant]
     Active Substance: METHOTREXATE
     Indication: PRODUCT USED FOR UNKNOWN INDICATION
     Dosage: ONCE PER WEEK 10?0?0 MG
  4. PREDNISONE. [Concomitant]
     Active Substance: PREDNISONE
     Dosage: 30?20?0 MG
  5. PREDNISONE. [Concomitant]
     Active Substance: PREDNISONE
     Indication: PRODUCT USED FOR UNKNOWN INDICATION
     Dosage: 40?20?0 MG
  6. METHOTREXATE. [Concomitant]
     Active Substance: METHOTREXATE
     Dosage: ONCE PER WEEK 12.5?0?0 MG
  7. CARBAMAZEPINE. [Suspect]
     Active Substance: CARBAMAZEPINE
     Indication: PRODUCT USED FOR UNKNOWN INDICATION

REACTIONS (4)
  - Hepatic enzyme increased [Unknown]
  - Partial seizures [Unknown]
  - Treatment noncompliance [Unknown]
  - Drug ineffective [Unknown]
